FAERS Safety Report 16675497 (Version 4)
Quarter: 2020Q2

REPORT INFORMATION
  Report Type: Spontaneous
  Country: DE (occurrence: DE)
  Receive Date: 20190806
  Receipt Date: 20200428
  Transmission Date: 20200713
  Serious: Yes (Death, Other)
  Sender: FDA-Public Use
  Company Number: PHHY2019DE181723

PATIENT
  Age: 17 Year
  Sex: Male
  Weight: 105 kg

DRUGS (5)
  1. FENTANYL. [Interacting]
     Active Substance: FENTANYL
     Dosage: THREE PATCHES OF 100 UG/H EACH - TOTAL: 300 UG/H
     Route: 062
  2. TILIDINE [Interacting]
     Active Substance: TILIDINE
     Indication: PRODUCT USED FOR UNKNOWN INDICATION
     Dosage: UNK
     Route: 065
  3. VALSARTAN. [Suspect]
     Active Substance: VALSARTAN
     Indication: PRODUCT USED FOR UNKNOWN INDICATION
     Dosage: UNK
     Route: 065
  4. CITALOPRAM [Interacting]
     Active Substance: CITALOPRAM HYDROBROMIDE
     Indication: PRODUCT USED FOR UNKNOWN INDICATION
     Dosage: UNK
     Route: 065
  5. FENTANYL. [Interacting]
     Active Substance: FENTANYL
     Indication: PRODUCT USED FOR UNKNOWN INDICATION
     Dosage: 100 MICROG/H, 3DF, THREE PATCHES OF 100 UG/H EACH - TOTAL: 300 UG/H
     Route: 062

REACTIONS (9)
  - Prescription drug used without a prescription [Fatal]
  - Drug interaction [Fatal]
  - Urinary retention [Fatal]
  - Brain oedema [Fatal]
  - Drug intolerance [Fatal]
  - Pulmonary oedema [Fatal]
  - Drug abuse [Fatal]
  - Toxicity to various agents [Fatal]
  - Intentional product misuse [Fatal]
